FAERS Safety Report 7443317-9 (Version None)
Quarter: 2011Q2

REPORT INFORMATION
  Report Type: 
  Country: None (occurrence: None)
  Receive Date: 20110428
  Receipt Date: 20110426
  Transmission Date: 20111010
  Serious: Yes (Death, Hospitalization)
  Sender: FDA-Public Use
  Company Number: CR-ABBOTT-11P-039-0710733-00

PATIENT
  Age: 50 Year
  Sex: Female

DRUGS (2)
  1. HUMIRA [Suspect]
     Indication: RHEUMATOID ARTHRITIS
     Route: 058
     Dates: start: 20090714
  2. ARAVA [Concomitant]
     Indication: RHEUMATOID ARTHRITIS

REACTIONS (7)
  - GASTROINTESTINAL HAEMORRHAGE [None]
  - SUBCUTANEOUS ABSCESS [None]
  - SKIN DISCOLOURATION [None]
  - PAIN [None]
  - ABSCESS LIMB [None]
  - HYPOCALCAEMIA [None]
  - ABDOMINAL ABSCESS [None]
